FAERS Safety Report 6272506-4 (Version None)
Quarter: 2009Q3

REPORT INFORMATION
  Report Type: 
  Country: None (occurrence: None)
  Receive Date: 20090713
  Receipt Date: 20090323
  Transmission Date: 20100115
  Serious: Yes (Hospitalization)
  Sender: FDA-Public Use
  Company Number: 623397

PATIENT
  Age: 84 Year
  Sex: Female

DRUGS (12)
  1. BONIVA [Suspect]
     Indication: OSTEOPOROSIS
     Dosage: 150 MG  1 PER MONTH  ORAL
     Route: 048
     Dates: start: 20070101
  2. GLYBURIDE [Concomitant]
  3. ISOSORBIDE DINITRATE [Concomitant]
  4. LISINOPRIL [Concomitant]
  5. HYDROCHLOROTHIAZIDE [Concomitant]
  6. WARFARIN SODIUM [Concomitant]
  7. DIAZEPAM [Concomitant]
  8. NORCO [Concomitant]
  9. MULTIVITAMIN [Concomitant]
  10. CALCIUM [Concomitant]
  11. VITAMIN D [Concomitant]
  12. FISH OIL (FATTY ACIDS NOS) [Concomitant]

REACTIONS (1)
  - PNEUMONIA [None]
